FAERS Safety Report 5207973-8 (Version None)
Quarter: 2007Q1

REPORT INFORMATION
  Report Type: 
  Country: None (occurrence: None)
  Receive Date: 20070110
  Receipt Date: 20061228
  Transmission Date: 20070707
  Serious: Yes (Hospitalization)
  Sender: FDA-Public Use
  Company Number: HQWYE084102JAN07

PATIENT
  Age: 79 Year
  Sex: Female

DRUGS (3)
  1. ETODOLAC [Suspect]
     Indication: LUMBAR VERTEBRAL FRACTURE
     Dosage: ORAL
     Route: 048
     Dates: start: 20050303
  2. OTSUJITOU (HERBAL EXTRACTS NOS) [Concomitant]
  3. SENNA LIQUID (SENNA LIQUID EXTRACT) [Concomitant]

REACTIONS (3)
  - COLITIS COLLAGENOUS [None]
  - COLON CANCER [None]
  - DIARRHOEA [None]
